FAERS Safety Report 11133495 (Version 1)
Quarter: 2015Q2

REPORT INFORMATION
  Report Type: Spontaneous
  Country: US (occurrence: US)
  Receive Date: 20150522
  Receipt Date: 20150522
  Transmission Date: 20150821
  Serious: No
  Sender: FDA-Public Use
  Company Number: US-009507513-1505USA006066

PATIENT
  Sex: Female

DRUGS (1)
  1. NEXPLANON [Suspect]
     Active Substance: ETONOGESTREL
     Dosage: ONE ROD IN LEFT ARM
     Route: 059
     Dates: start: 20131206

REACTIONS (2)
  - Pain [Unknown]
  - Device dislocation [Not Recovered/Not Resolved]
